FAERS Safety Report 21360312 (Version 1)
Quarter: 2022Q3

REPORT INFORMATION
  Report Type: Report from Study
  Country: US (occurrence: US)
  Receive Date: 20220921
  Receipt Date: 20220921
  Transmission Date: 20221026
  Serious: Yes (Other)
  Sender: FDA-Public Use
  Company Number: US-ABBVIE-22K-163-4360811-00

PATIENT
  Sex: Female

DRUGS (3)
  1. HUMIRA [Suspect]
     Active Substance: ADALIMUMAB
     Indication: Psoriatic arthropathy
     Dosage: CITRATE FREE
     Route: 058
  2. HUMIRA [Suspect]
     Active Substance: ADALIMUMAB
     Dosage: CITRATE FREE
     Route: 058
  3. JANSSEN COVID-19 VACCINE [Concomitant]
     Active Substance: AD26.COV2.S
     Indication: COVID-19 immunisation
     Dosage: 1ST DOSE 1 IN ONCE
     Route: 030
     Dates: start: 20210401, end: 20210401

REACTIONS (5)
  - Coronary artery bypass [Recovered/Resolved]
  - Post procedural oedema [Recovered/Resolved]
  - Psoriasis [Not Recovered/Not Resolved]
  - Gastrointestinal bacterial infection [Unknown]
  - Cardiac operation [Recovered/Resolved]

NARRATIVE: CASE EVENT DATE: 20220101
